FAERS Safety Report 5215311-X (Version None)
Quarter: 2007Q1

REPORT INFORMATION
  Report Type: 
  Country: None (occurrence: None)
  Receive Date: 20070116
  Receipt Date: 20070112
  Transmission Date: 20070707
  Serious: Yes (Other)
  Sender: FDA-Public Use
  Company Number: HQWYE282115DEC06

PATIENT
  Age: 45 Year
  Sex: Female

DRUGS (1)
  1. PIPERACILLIN AND TAZOBACTAM [Suspect]
     Dosage: 5 GRAMS DAILY
     Route: 041
     Dates: end: 20061101

REACTIONS (1)
  - BLOOD CREATINE PHOSPHOKINASE INCREASED [None]
